FAERS Safety Report 4514839-5 (Version None)
Quarter: 2004Q4

REPORT INFORMATION
  Report Type: 
  Country: None (occurrence: None)
  Receive Date: 20041126
  Receipt Date: 20041116
  Transmission Date: 20050328
  Serious: Yes (Hospitalization)
  Sender: FDA-Public Use
  Company Number: 2004-11-0565

PATIENT
  Age: 69 Year
  Sex: Male
  Weight: 74 kg

DRUGS (8)
  1. TEMODAL [Suspect]
     Indication: GLIOBLASTOMA MULTIFORME
     Dosage: SEE IMAGE
     Route: 048
     Dates: start: 20040809, end: 20040813
  2. TEMODAL [Suspect]
     Indication: GLIOBLASTOMA MULTIFORME
     Dosage: SEE IMAGE
     Route: 048
     Dates: start: 20040809, end: 20041011
  3. TEMODAL [Suspect]
     Indication: GLIOBLASTOMA MULTIFORME
     Dosage: SEE IMAGE
     Route: 048
     Dates: start: 20041007, end: 20041011
  4. RADIATION THERAPY [Concomitant]
  5. FENYTOIN [Concomitant]
  6. OMEPRAZOLE [Concomitant]
  7. FERROUS FUMARATE [Concomitant]
  8. ASCORBIC ACID [Interacting]

REACTIONS (9)
  - CITROBACTER INFECTION [None]
  - ECCHYMOSIS [None]
  - ENTEROBACTER BACTERAEMIA [None]
  - ESCHERICHIA BACTERAEMIA [None]
  - FEBRILE NEUTROPENIA [None]
  - ORAL CANDIDIASIS [None]
  - PANCYTOPENIA [None]
  - PERIORBITAL CELLULITIS [None]
  - PETECHIAE [None]
